FAERS Safety Report 9644910 (Version 1)
Quarter: 2013Q4

REPORT INFORMATION
  Report Type: Spontaneous
  Country: IT (occurrence: IT)
  Receive Date: 20131025
  Receipt Date: 20131025
  Transmission Date: 20140711
  Serious: Yes (Hospitalization)
  Sender: FDA-Public Use
  Company Number: PHHY2013IT120084

PATIENT
  Sex: Male

DRUGS (6)
  1. TAREG [Suspect]
     Indication: HYPERTENSION
     Dosage: 1 DF (80 MG), DAILY
     Route: 048
     Dates: start: 20091017, end: 20131017
  2. AVODART [Concomitant]
  3. OMNIC [Concomitant]
  4. LASIX [Concomitant]
  5. EUTIROX [Concomitant]
  6. ZYLORIC [Concomitant]

REACTIONS (2)
  - Laryngospasm [Recovered/Resolved]
  - Respiratory failure [Recovered/Resolved]
